FAERS Safety Report 5485931-6 (Version None)
Quarter: 2007Q4

REPORT INFORMATION
  Report Type: 
  Country: None (occurrence: None)
  Receive Date: 20071015
  Receipt Date: 20071002
  Transmission Date: 20080405
  Serious: Yes (Hospitalization)
  Sender: FDA-Public Use
  Company Number: US-SHR-US-2007-037141

PATIENT
  Age: 46 Year
  Sex: Female

DRUGS (1)
  1. BETASERON [Suspect]
     Indication: MULTIPLE SCLEROSIS
     Dosage: 8 MIU, EVERY 2D
     Route: 058
     Dates: start: 20070702

REACTIONS (5)
  - FACE INJURY [None]
  - FALL [None]
  - LOSS OF CONSCIOUSNESS [None]
  - RASH MACULAR [None]
  - UPPER LIMB FRACTURE [None]
